FAERS Safety Report 4881987-X (Version None)
Quarter: 2006Q1

REPORT INFORMATION
  Report Type: 
  Country: None (occurrence: None)
  Receive Date: 20060117
  Receipt Date: 20051212
  Transmission Date: 20060701
  Serious: Yes (Death, Hospitalization)
  Sender: FDA-Public Use
  Company Number: NL-SANOFI-SYNTHELABO-F01200502728

PATIENT
  Sex: Male

DRUGS (8)
  1. OXALIPLATIN [Suspect]
     Indication: COLORECTAL CANCER
     Route: 041
     Dates: start: 20051123, end: 20051123
  2. CAPECITABINE [Suspect]
     Dosage: DAYS 1-14 (1250 MG/M2 AFTER CYCLE 6)
     Route: 048
     Dates: start: 20051123
  3. BEVACIZUMAB [Suspect]
     Route: 041
     Dates: start: 20051123, end: 20051123
  4. OMNIC [Concomitant]
  5. SPIRIVA [Concomitant]
  6. OXIS [Concomitant]
  7. PULMICORT [Concomitant]
  8. BUDESONIDE [Concomitant]

REACTIONS (6)
  - BRONCHITIS [None]
  - CARDIAC ARREST [None]
  - DIARRHOEA [None]
  - DYSPNOEA [None]
  - PYREXIA [None]
  - WHITE BLOOD CELL COUNT DECREASED [None]
